FAERS Safety Report 25011170 (Version 1)
Quarter: 2025Q1

REPORT INFORMATION
  Report Type: Report from Study
  Country: CA (occurrence: CA)
  Receive Date: 20250226
  Receipt Date: 20250226
  Transmission Date: 20250409
  Serious: Yes (Other)
  Sender: ABBVIE
  Company Number: CA-ABBVIE-6146624

PATIENT
  Sex: Male
  Weight: 92.9 kg

DRUGS (1)
  1. RINVOQ [Suspect]
     Active Substance: UPADACITINIB
     Indication: Crohn^s disease
     Route: 048

REACTIONS (5)
  - Ostomy bag placement [Unknown]
  - Malaise [Unknown]
  - Arthralgia [Unknown]
  - Impaired work ability [Unknown]
  - Social problem [Unknown]
